FAERS Safety Report 9339345 (Version 4)
Quarter: 2015Q4

REPORT INFORMATION
  Report Type: Report from Study
  Country: US (occurrence: US)
  Receive Date: 20130610
  Receipt Date: 20151023
  Transmission Date: 20160305
  Serious: Yes (Disabling)
  Sender: FDA-Public Use
  Company Number: US-ROCHE-1233852

PATIENT
  Age: 70 Year
  Sex: Female

DRUGS (1)
  1. LUCENTIS [Suspect]
     Active Substance: RANIBIZUMAB
     Indication: NEOVASCULAR AGE-RELATED MACULAR DEGENERATION
     Dosage: 0.05ML
     Route: 050

REACTIONS (7)
  - Insomnia [Recovered/Resolved]
  - Eye swelling [Unknown]
  - Anxiety [Unknown]
  - Eye contusion [Unknown]
  - Blindness unilateral [Unknown]
  - Sleep apnoea syndrome [Unknown]
  - Pain [Unknown]

NARRATIVE: CASE EVENT DATE: 20130429
